FAERS Safety Report 14015617 (Version 1)
Quarter: 2017Q3

REPORT INFORMATION
  Report Type: Spontaneous
  Country: IN (occurrence: IN)
  Receive Date: 20170927
  Receipt Date: 20170927
  Transmission Date: 20171128
  Serious: Yes (Other)
  Sender: FDA-Public Use
  Company Number: IN-MYLANLABS-2017M1060748

PATIENT
  Age: 40 Year
  Sex: Female

DRUGS (4)
  1. CYCLOPHOSPHAMIDE. [Suspect]
     Active Substance: CYCLOPHOSPHAMIDE
     Indication: BREAST CANCER METASTATIC
     Dosage: FOUR CYCLES
     Route: 065
  2. FLUOROURACIL. [Suspect]
     Active Substance: FLUOROURACIL
     Indication: BREAST CANCER METASTATIC
     Dosage: FOUR CYCLES
     Route: 065
  3. EPIRUBICIN [Suspect]
     Active Substance: EPIRUBICIN
     Indication: BREAST CANCER METASTATIC
     Dosage: FOUR CYCLES
     Route: 065
  4. PACLITAXEL. [Suspect]
     Active Substance: PACLITAXEL
     Indication: BREAST CANCER METASTATIC
     Dosage: FOUR CYCLES
     Route: 065

REACTIONS (1)
  - Small cell lung cancer metastatic [Unknown]
